FAERS Safety Report 12601069 (Version 1)
Quarter: 2016Q3

REPORT INFORMATION
  Report Type: Spontaneous
  Country: GB (occurrence: GB)
  Receive Date: 20160728
  Receipt Date: 20160728
  Transmission Date: 20161109
  Serious: Yes (Other)
  Sender: FDA-Public Use
  Company Number: GB-ROCHE-1801733

PATIENT
  Age: 63 Year
  Sex: Male

DRUGS (12)
  1. CHLORPHENAMINE [Concomitant]
     Active Substance: CHLORPHENIRAMINE MALEATE
  2. PREGABALIN. [Concomitant]
     Active Substance: PREGABALIN
  3. FORCEVAL [Concomitant]
     Active Substance: FOLIC ACID\IRON\MINERALS\VITAMINS
  4. THIAMINE. [Concomitant]
     Active Substance: THIAMINE
  5. AVASTIN [Suspect]
     Active Substance: BEVACIZUMAB
     Indication: PRODUCT USED FOR UNKNOWN INDICATION
     Route: 042
  6. OXYCODONE [Concomitant]
     Active Substance: OXYCODONE
  7. XGEVA [Suspect]
     Active Substance: DENOSUMAB
     Indication: PRODUCT USED FOR UNKNOWN INDICATION
     Route: 058
  8. FUROSEMIDE. [Concomitant]
     Active Substance: FUROSEMIDE
  9. LANSOPRAZOLE. [Concomitant]
     Active Substance: LANSOPRAZOLE
  10. NEULASTA [Suspect]
     Active Substance: PEGFILGRASTIM
     Indication: PRODUCT USED FOR UNKNOWN INDICATION
     Route: 065
  11. IRINOTECAN [Suspect]
     Active Substance: IRINOTECAN
     Indication: PRODUCT USED FOR UNKNOWN INDICATION
     Route: 065
  12. ANORO ELLIPTA [Concomitant]
     Active Substance: UMECLIDINIUM BROMIDE\VILANTEROL TRIFENATATE

REACTIONS (9)
  - Failure to anastomose [Unknown]
  - Arthralgia [Unknown]
  - Insomnia [Unknown]
  - Spinal pain [Unknown]
  - Alopecia [Unknown]
  - Dyspnoea exertional [Unknown]
  - Neuropathy peripheral [Unknown]
  - Chronic obstructive pulmonary disease [Unknown]
  - Skin ulcer [Unknown]
